FAERS Safety Report 8183434-1 (Version None)
Quarter: 2012Q1

REPORT INFORMATION
  Report Type: 
  Country: None (occurrence: None)
  Receive Date: 20120305
  Receipt Date: 20120223
  Transmission Date: 20120608
  Serious: Yes (Hospitalization)
  Sender: FDA-Public Use
  Company Number: JP-PFIZER INC-2012054166

PATIENT
  Age: 89 Year
  Sex: Female

DRUGS (10)
  1. DILTIAZEM HCL [Suspect]
     Indication: TACHYCARDIA
     Dosage: 200 MG, DAILY
     Route: 048
     Dates: start: 20110512, end: 20110518
  2. ASPENON [Suspect]
     Dosage: 20 MG, DAILY
     Route: 048
     Dates: start: 20110512, end: 20110518
  3. ALMARL [Suspect]
     Dosage: 5 MG, DAILY
     Route: 048
     Dates: end: 20110518
  4. PRADAXA [Suspect]
     Indication: CARDIAC FAILURE
     Dosage: 220 MG, DAILY
     Route: 048
     Dates: start: 20110512, end: 20110518
  5. ALDACTONE [Suspect]
     Dosage: 25 MG, DAILY
     Route: 048
     Dates: start: 20110127, end: 20110518
  6. NORVASC [Suspect]
     Dosage: 5 MG, DAILY
     Route: 048
     Dates: start: 20110512, end: 20110518
  7. DIOVAN HCT [Suspect]
     Dosage: 1 DF, UDAILY
     Route: 048
     Dates: start: 20100902, end: 20110518
  8. DILTIAZEM HCL [Suspect]
     Indication: CARDIAC FAILURE
  9. DOXAZOSIN MESYLATE [Suspect]
     Dosage: 2 MG, DAILY
     Route: 048
     Dates: start: 20101021, end: 20110518
  10. LASIX [Suspect]
     Indication: CARDIAC FAILURE
     Dosage: 20 MG, DAILY
     Route: 048
     Dates: start: 20110512, end: 20110518

REACTIONS (3)
  - GINGIVAL BLEEDING [None]
  - BRADYCARDIA [None]
  - RENAL FAILURE ACUTE [None]
